FAERS Safety Report 24992351 (Version 1)
Quarter: 2025Q1

REPORT INFORMATION
  Report Type: Spontaneous
  Country: RO (occurrence: RO)
  Receive Date: 20250220
  Receipt Date: 20250220
  Transmission Date: 20250409
  Serious: Yes (Hospitalization, Other)
  Sender: FRESENIUS KABI
  Company Number: RO-RBHC-20-25-ROM-RB-0001591

PATIENT
  Age: 10 Year
  Sex: Male
  Weight: 50 kg

DRUGS (2)
  1. ACETAMINOPHEN [Suspect]
     Active Substance: ACETAMINOPHEN
     Indication: Influenza
     Route: 065
     Dates: start: 20250126
  2. IBUPROFEN [Suspect]
     Active Substance: IBUPROFEN
     Indication: Influenza
     Route: 065
     Dates: start: 20250126, end: 2025

REACTIONS (3)
  - Upper gastrointestinal haemorrhage [Recovered/Resolved with Sequelae]
  - Faeces discoloured [Recovered/Resolved with Sequelae]
  - Injury [Recovered/Resolved with Sequelae]

NARRATIVE: CASE EVENT DATE: 20250126
